FAERS Safety Report 6074827-7 (Version None)
Quarter: 2009Q1

REPORT INFORMATION
  Report Type: 
  Country: None (occurrence: None)
  Receive Date: 20090212
  Receipt Date: 20090205
  Transmission Date: 20090719
  Serious: Yes (Other)
  Sender: FDA-Public Use
  Company Number: PHHY2008BR32762

PATIENT
  Age: 80 Year
  Sex: Female

DRUGS (8)
  1. EXELON [Suspect]
     Dosage: UNK
  2. EXELON [Suspect]
     Indication: DEMENTIA ALZHEIMER'S TYPE
     Dosage: 2 DF, QD
     Route: 048
  3. CALCIUM CARBONATE [Concomitant]
     Indication: OSTEOPOROSIS
     Dosage: 1 TABLET/DAY
     Route: 048
  4. ALENDRONATE SODIUM [Concomitant]
     Indication: OSTEOPOROSIS
     Dosage: 1 TABLET EVERY 7 DAYS
     Route: 048
  5. PROLOPA [Concomitant]
     Indication: PARKINSON'S DISEASE
     Dosage: 2 TABLETS/DAY
     Route: 048
     Dates: start: 20050801
  6. SEROQUEL [Concomitant]
     Indication: HALLUCINATION
     Dosage: 2 TABLETS/DAY
     Route: 048
  7. IMIPRAMINE [Concomitant]
     Indication: DEPRESSED MOOD
     Dosage: 1 TABLET/DAY
     Route: 048
  8. SERTRALINE [Concomitant]
     Indication: INSOMNIA
     Dosage: 1 TABLET/NIGHT
     Route: 048

REACTIONS (5)
  - DEMENTIA [None]
  - DRY SKIN [None]
  - ERYTHEMA [None]
  - HALLUCINATION [None]
  - SKIN IRRITATION [None]
